FAERS Safety Report 18131163 (Version 2)
Quarter: 2020Q4

REPORT INFORMATION
  Report Type: Spontaneous
  Country: US (occurrence: US)
  Receive Date: 20200810
  Receipt Date: 20201026
  Transmission Date: 20210113
  Serious: Yes (Other)
  Sender: FDA-Public Use
  Company Number: US-PURDUE-USA-2020-0160575

PATIENT
  Age: 61 Year
  Sex: Male
  Weight: 97.5 kg

DRUGS (4)
  1. OXYCONTIN [Suspect]
     Active Substance: OXYCODONE HYDROCHLORIDE
     Indication: BACK DISORDER
     Dosage: 5 MG, UNK, 7 PILLS PER DAY
     Route: 048
  2. OXYCODONE HYDROCHLORIDE (SIMILAR TO NDA 22-272) [Suspect]
     Active Substance: OXYCODONE HYDROCHLORIDE
     Indication: PRODUCT USED FOR UNKNOWN INDICATION
     Dosage: UNK
     Route: 055
  3. OXYCONTIN [Suspect]
     Active Substance: OXYCODONE HYDROCHLORIDE
     Dosage: 15 MG, UNK, 7 PILLS PER DAY
     Route: 048
  4. OXYCONTIN [Suspect]
     Active Substance: OXYCODONE HYDROCHLORIDE
     Dosage: 10 MG, UNK, 7 PILLS PER DAY
     Route: 048

REACTIONS (10)
  - Dependence [Unknown]
  - Pain [Unknown]
  - Anxiety [Unknown]
  - Tachypnoea [Unknown]
  - Intentional overdose [Recovered/Resolved]
  - Lung hypoinflation [Unknown]
  - Brain injury [Unknown]
  - Tachycardia [Unknown]
  - Aortic disorder [Unknown]
  - Drug abuse [Unknown]

NARRATIVE: CASE EVENT DATE: 20180606
